FAERS Safety Report 7539780-5 (Version None)
Quarter: 2011Q2

REPORT INFORMATION
  Report Type: 
  Country: None (occurrence: None)
  Receive Date: 20110610
  Receipt Date: 20110527
  Transmission Date: 20111010
  Serious: Yes (Other)
  Sender: FDA-Public Use
  Company Number: PHEH2005US13440

PATIENT
  Sex: Female

DRUGS (8)
  1. WARFARIN SODIUM [Concomitant]
     Dosage: 5 MG, AS DIRECTED
     Route: 048
  2. AREDIA [Suspect]
  3. LEVAQUIN [Concomitant]
     Dosage: 500 MG, QD
     Route: 048
  4. ZOMETA [Suspect]
     Dosage: UNK
  5. RESTORIL [Concomitant]
     Dosage: 7.5 MG, QHS
     Route: 048
  6. AMBIEN [Concomitant]
     Dosage: 10 MG, QHS
     Route: 048
  7. FEMARA [Concomitant]
     Dosage: 2.5 MG, QD
     Route: 048
  8. HYDROCHLOROTHIAZIDE [Concomitant]
     Dosage: 25 MG, QD
     Route: 048

REACTIONS (27)
  - NEOPLASM MALIGNANT [None]
  - LYMPHADENOPATHY [None]
  - ABSCESS [None]
  - HEPATIC NEOPLASM MALIGNANT [None]
  - OSTEOMYELITIS [None]
  - ANAEMIA OF MALIGNANT DISEASE [None]
  - DEVICE OCCLUSION [None]
  - GENERAL PHYSICAL HEALTH DETERIORATION [None]
  - RECTAL CANCER [None]
  - COLLATERAL CIRCULATION [None]
  - INTERVERTEBRAL DISC PROTRUSION [None]
  - NEUTROPENIA [None]
  - CLAUSTROPHOBIA [None]
  - TRICUSPID VALVE INCOMPETENCE [None]
  - AORTIC VALVE INCOMPETENCE [None]
  - PULMONARY HYPERTENSION [None]
  - TACHYCARDIA [None]
  - METASTASES TO LUNG [None]
  - SEASONAL ALLERGY [None]
  - ASTHMA [None]
  - FACET JOINT SYNDROME [None]
  - LEFT VENTRICULAR DYSFUNCTION [None]
  - OSTEONECROSIS OF JAW [None]
  - PAIN [None]
  - DECREASED INTEREST [None]
  - ANXIETY [None]
  - POST-TRAUMATIC OSTEOPOROSIS [None]
